FAERS Safety Report 8419555-5 (Version None)
Quarter: 2012Q2

REPORT INFORMATION
  Report Type: 
  Country: None (occurrence: None)
  Receive Date: 20120607
  Receipt Date: 20120524
  Transmission Date: 20120825
  Serious: No
  Sender: FDA-Public Use
  Company Number: US-ASTRAZENECA-2010SE27588

PATIENT
  Age: 42 Year
  Sex: Female
  Weight: 81.6 kg

DRUGS (3)
  1. SYMBICORT [Suspect]
     Dosage: 160 MCG, 2 PUFFS ONCE A DAY
     Route: 055
  2. SYMBICORT [Suspect]
     Indication: ASTHMA
     Dosage: 160 MCG, 2 PUFFS BID
     Route: 055
     Dates: start: 20100501
  3. ALBUTEROL [Concomitant]

REACTIONS (3)
  - INTENTIONAL DRUG MISUSE [None]
  - DRUG DISPENSING ERROR [None]
  - CONDITION AGGRAVATED [None]
